FAERS Safety Report 16993676 (Version 1)
Quarter: 2019Q4

REPORT INFORMATION
  Report Type: Spontaneous
  Country: US (occurrence: US)
  Receive Date: 20191105
  Receipt Date: 20191105
  Transmission Date: 20200122
  Serious: No
  Sender: FDA-Public Use
  Company Number: US-LEXICON PHARMACEUTICALS, INC-19-1606-00977

PATIENT
  Sex: Female

DRUGS (17)
  1. LIDOCAINE. [Concomitant]
     Active Substance: LIDOCAINE
  2. BUMETANIDE. [Concomitant]
     Active Substance: BUMETANIDE
  3. VALACYCLOVIR [Concomitant]
     Active Substance: VALACYCLOVIR HYDROCHLORIDE
  4. NORCO [Concomitant]
     Active Substance: ACETAMINOPHEN\HYDROCODONE BITARTRATE
  5. PROMETHAZINE [Concomitant]
     Active Substance: PROMETHAZINE HYDROCHLORIDE
  6. XERMELO [Suspect]
     Active Substance: TELOTRISTAT ETHYL
     Route: 048
  7. LEXAPRO [Concomitant]
     Active Substance: ESCITALOPRAM OXALATE
  8. LOPERAMIDE [Concomitant]
     Active Substance: LOPERAMIDE
  9. REFRESH [Concomitant]
     Active Substance: UNSPECIFIED INGREDIENT
  10. LEVOTHYROXINE. [Concomitant]
     Active Substance: LEVOTHYROXINE
  11. FLONASE [Concomitant]
     Active Substance: FLUTICASONE PROPIONATE
  12. RISEDRONATE SODIUM. [Concomitant]
     Active Substance: RISEDRONATE SODIUM
  13. VITAMIN B12 [Concomitant]
     Active Substance: CYANOCOBALAMIN
  14. XERMELO [Suspect]
     Active Substance: TELOTRISTAT ETHYL
     Indication: CARCINOID SYNDROME
     Route: 048
     Dates: start: 20180602
  15. ALREX [Concomitant]
     Active Substance: LOTEPREDNOL ETABONATE
  16. CALCIUM [Concomitant]
     Active Substance: CALCIUM
  17. SOMATULINE DEPOT [Concomitant]
     Active Substance: LANREOTIDE ACETATE

REACTIONS (1)
  - Constipation [Unknown]
